FAERS Safety Report 10240415 (Version 1)
Quarter: 2014Q2

REPORT INFORMATION
  Report Type: Spontaneous
  Country: US (occurrence: US)
  Receive Date: 20140617
  Receipt Date: 20140617
  Transmission Date: 20141212
  Serious: No
  Sender: FDA-Public Use
  Company Number: US-BIOGENIDEC-2014BI055241

PATIENT
  Age: 51 Year
  Sex: Male

DRUGS (4)
  1. TECFIDERA [Suspect]
     Indication: MULTIPLE SCLEROSIS
     Route: 048
  2. CYANOCOBALAMIN [Concomitant]
  3. DIVALPROEX SODIUM [Concomitant]
  4. ASPIRIN [Concomitant]

REACTIONS (1)
  - Laboratory test abnormal [Unknown]
